FAERS Safety Report 7114410-5 (Version None)
Quarter: 2010Q4

REPORT INFORMATION
  Report Type: 
  Country: None (occurrence: None)
  Receive Date: 20101119
  Receipt Date: 20101117
  Transmission Date: 20110411
  Serious: Yes (Other)
  Sender: FDA-Public Use
  Company Number: JP-PFIZER INC-2010150170

PATIENT
  Age: 94 Year
  Sex: Male

DRUGS (5)
  1. AMLODIPINE BESYLATE [Suspect]
     Indication: HYPERTENSION
     Dosage: 5 MG, UNK
     Dates: start: 20100220
  2. MAGNESIUM OXIDE [Concomitant]
     Indication: HYPERTENSION
     Dosage: 660 MG, UNK
  3. MAGNESIUM OXIDE [Concomitant]
     Indication: CONSTIPATION
  4. TELMISARTAN [Concomitant]
     Indication: HYPERTENSION
     Dosage: 20 MG, UNK
  5. TELMISARTAN [Concomitant]
     Indication: CONSTIPATION

REACTIONS (2)
  - DISSEMINATED INTRAVASCULAR COAGULATION [None]
  - MYELODYSPLASTIC SYNDROME [None]
